FAERS Safety Report 7425660-2 (Version None)
Quarter: 2011Q2

REPORT INFORMATION
  Report Type: 
  Country: None (occurrence: None)
  Receive Date: 20110418
  Receipt Date: 20110418
  Transmission Date: 20111010
  Serious: No
  Sender: FDA-Public Use
  Company Number: None

PATIENT
  Sex: Female
  Weight: 70.3075 kg

DRUGS (2)
  1. EFFEXOR XR [Suspect]
     Dosage: 150MG ONE Q DAILY PO
     Route: 048
     Dates: start: 20100101, end: 20100601
  2. EFFEXOR XR [Suspect]
     Dosage: 150MG ONE Q DAILY PO
     Route: 048
     Dates: start: 20100601, end: 20100901

REACTIONS (4)
  - DRUG INEFFECTIVE [None]
  - RESPIRATORY RATE INCREASED [None]
  - PALPITATIONS [None]
  - PRODUCT SUBSTITUTION ISSUE [None]
